FAERS Safety Report 18437227 (Version 3)
Quarter: 2021Q2

REPORT INFORMATION
  Report Type: Spontaneous
  Country: CA (occurrence: CA)
  Receive Date: 20201028
  Receipt Date: 20210421
  Transmission Date: 20210717
  Serious: Yes (Other)
  Sender: FDA-Public Use
  Company Number: CA-SAMSUNG BIOEPIS-SB-2020-32553

PATIENT
  Age: 39 Year
  Sex: Female
  Weight: 58 kg

DRUGS (2)
  1. INFLIXIMAB [Suspect]
     Active Substance: INFLIXIMAB
     Indication: CROHN^S DISEASE
     Route: 042
  2. BUDESONIDE. [Concomitant]
     Active Substance: BUDESONIDE
     Indication: CONDITION AGGRAVATED
     Route: 065

REACTIONS (11)
  - Intentional product use issue [Unknown]
  - Condition aggravated [Unknown]
  - Heart rate decreased [Unknown]
  - Rectal haemorrhage [Unknown]
  - Colitis ulcerative [Unknown]
  - Oral candidiasis [Unknown]
  - Oxygen saturation abnormal [Unknown]
  - Off label use [Unknown]
  - Heart rate increased [Unknown]
  - Product prescribing error [Unknown]
  - Heart rate irregular [Unknown]
